FAERS Safety Report 7278515-0 (Version None)
Quarter: 2011Q1

REPORT INFORMATION
  Report Type: 
  Country: None (occurrence: None)
  Receive Date: 20110207
  Receipt Date: 20110105
  Transmission Date: 20110831
  Serious: No
  Sender: FDA-Public Use
  Company Number: US-PFIZER INC-2011004601

PATIENT
  Sex: Female

DRUGS (2)
  1. GEODON [Suspect]
     Dosage: UNK
  2. CENTRUM SILVER [Suspect]
     Dosage: UNK

REACTIONS (3)
  - DYSPNOEA [None]
  - FOREIGN BODY [None]
  - PRODUCT SIZE ISSUE [None]
